FAERS Safety Report 7299870-1 (Version None)
Quarter: 2011Q1

REPORT INFORMATION
  Report Type: 
  Country: None (occurrence: None)
  Receive Date: 20110217
  Receipt Date: 20110214
  Transmission Date: 20110831
  Serious: Yes (Other)
  Sender: FDA-Public Use
  Company Number: JP-PFIZER INC-2011025207

PATIENT
  Age: 78 Year
  Sex: Female

DRUGS (3)
  1. PLETAL [Concomitant]
     Dosage: 50 MG, 2X/DAY
     Route: 048
     Dates: start: 20060201
  2. NORVASC [Suspect]
     Dosage: 5 MG, 1X/DAY
     Route: 048
     Dates: start: 20060201
  3. TENORMIN [Concomitant]
     Dosage: 25 MG, 1X/DAY
     Route: 048
     Dates: start: 20060201

REACTIONS (3)
  - VOMITING [None]
  - FAECAL INCONTINENCE [None]
  - LOSS OF CONSCIOUSNESS [None]
